FAERS Safety Report 7066258-8 (Version None)
Quarter: 2010Q4

REPORT INFORMATION
  Report Type: 
  Country: None (occurrence: None)
  Receive Date: 20101027
  Receipt Date: 20091204
  Transmission Date: 20110411
  Serious: Yes (Other)
  Sender: FDA-Public Use
  Company Number: HQWYE753503AUG04

PATIENT
  Sex: Female
  Weight: 48.12 kg

DRUGS (5)
  1. PREMPRO [Suspect]
     Dosage: UNKNOWN
     Dates: start: 19951001, end: 19961101
  2. MEDROXYPROGESTERONE [Suspect]
     Dosage: UNKNOWN
     Dates: start: 19950101
  3. OGEN [Suspect]
     Dosage: UNKNOWN
     Dates: start: 19881001, end: 19941201
  4. PREMARIN [Suspect]
     Dosage: UNKNOWN
     Dates: start: 19941201, end: 19951001
  5. MEDROXYPROGESTERONE ACETATE [Suspect]
     Dosage: UNKNOWN
     Dates: start: 19881001, end: 19951001

REACTIONS (1)
  - BREAST CANCER [None]
